FAERS Safety Report 4394313-X (Version None)
Quarter: 2004Q3

REPORT INFORMATION
  Report Type: 
  Country: None (occurrence: None)
  Receive Date: 20040706
  Receipt Date: 20040618
  Transmission Date: 20050211
  Serious: Yes (Hospitalization)
  Sender: FDA-Public Use
  Company Number: 200413005BCC

PATIENT
  Age: 70 Year
  Sex: Male

DRUGS (27)
  1. ASPIRIN [Suspect]
     Dates: start: 19830101
  2. VERTEPORFIN OR PLACEBO (CODE NOT BROKEN) (UNJCODEABLE ^INVESTIGATIONAL [Suspect]
     Indication: MACULAR DEGENERATION
     Dates: start: 20030904
  3. METFORMIN HCL [Concomitant]
  4. VITAMIN C [Concomitant]
  5. VITAMIN E [Concomitant]
  6. HYDROCHLOROTHIAZIDE [Concomitant]
  7. ZINC [Concomitant]
  8. GLYBURIDE [Concomitant]
  9. CLARITHROMYCIN [Concomitant]
  10. IRBESARTAN [Concomitant]
  11. METOPROLOL [Concomitant]
  12. VITAMIN B6 [Concomitant]
  13. NITROGLYCERIN [Concomitant]
  14. WARFARIN SODIUM [Concomitant]
  15. AMLODIPINE BESYLATE [Concomitant]
  16. ALBUTEROL SULFTE [Concomitant]
  17. PLETAL [Concomitant]
  18. NICOTROL [Concomitant]
  19. IPRATROPIUM BROMIDE [Concomitant]
  20. BUDESONIDE [Concomitant]
  21. CLOPIDOGREL BISULFATE [Concomitant]
  22. INSULIN [Concomitant]
  23. RAMIPRIL [Concomitant]
  24. PREDNISONE [Concomitant]
  25. PANTOPRAZOLE SODIUM [Concomitant]
  26. IRON SULFATETHIAMIN COMPOUND TAB [Concomitant]
  27. CLOPIDOGREL [Concomitant]

REACTIONS (6)
  - FREQUENT BOWEL MOVEMENTS [None]
  - GASTROINTESTINAL ARTERIOVENOUS MALFORMATION [None]
  - GASTROINTESTINAL HAEMORRHAGE [None]
  - MACULAR DEGENERATION [None]
  - MYOCARDIAL INFARCTION [None]
  - RECTAL HAEMORRHAGE [None]
